FAERS Safety Report 13314520 (Version 8)
Quarter: 2018Q2

REPORT INFORMATION
  Report Type: Report from Study
  Country: US (occurrence: US)
  Receive Date: 20170309
  Receipt Date: 20180611
  Transmission Date: 20180711
  Serious: Yes (Hospitalization)
  Sender: FDA-Public Use
  Company Number: US-ACTELION-A-US2017-150888

PATIENT
  Age: 8 Year
  Sex: Female
  Weight: 31.75 kg

DRUGS (4)
  1. TRACLEER [Suspect]
     Active Substance: BOSENTAN
     Indication: PULMONARY ARTERIAL HYPERTENSION
     Dosage: 62.5 MG, BID
     Route: 048
  2. TRACLEER [Suspect]
     Active Substance: BOSENTAN
     Dosage: 62.5 MG, BID
     Route: 048
     Dates: end: 201710
  3. REVATIO [Concomitant]
     Active Substance: SILDENAFIL CITRATE
  4. ADCIRCA [Concomitant]
     Active Substance: TADALAFIL

REACTIONS (19)
  - Dyspnoea [Unknown]
  - Loss of consciousness [Unknown]
  - Chest pain [Unknown]
  - Asthenia [Unknown]
  - Bronchitis [Unknown]
  - Pyrexia [Unknown]
  - Malaise [Unknown]
  - Tachycardia [Unknown]
  - Wheezing [Unknown]
  - Liver function test increased [Recovered/Resolved]
  - Blood alkaline phosphatase increased [Recovered/Resolved]
  - Headache [Unknown]
  - Asthma [Unknown]
  - Enzyme level increased [Unknown]
  - Aspartate aminotransferase increased [Recovered/Resolved]
  - Alanine aminotransferase increased [Recovered/Resolved]
  - Dizziness [Unknown]
  - Dyspnoea exertional [Unknown]
  - Cough [Unknown]

NARRATIVE: CASE EVENT DATE: 2018
